FAERS Safety Report 15547990 (Version 4)
Quarter: 2019Q1

REPORT INFORMATION
  Report Type: Spontaneous
  Country: IT (occurrence: IT)
  Receive Date: 20181024
  Receipt Date: 20190203
  Transmission Date: 20190417
  Serious: Yes (Other)
  Sender: FDA-Public Use
  Company Number: PHHY2018IT133018

PATIENT
  Age: 33 Year
  Sex: Female

DRUGS (1)
  1. MONTELUKAST SODIUM. [Suspect]
     Active Substance: MONTELUKAST SODIUM
     Indication: ASTHMA
     Dosage: UNK
     Route: 048

REACTIONS (5)
  - Platelet disorder [Recovered/Resolved]
  - Contusion [Recovered/Resolved]
  - Haemorrhage [Recovered/Resolved]
  - Ecchymosis [Recovered/Resolved]
  - Platelet dysfunction [Recovering/Resolving]
